FAERS Safety Report 19209477 (Version 1)
Quarter: 2021Q2

REPORT INFORMATION
  Report Type: Other
  Country: US (occurrence: US)
  Receive Date: 20210503
  Receipt Date: 20210503
  Transmission Date: 20210717
  Serious: No
  Sender: FDA-Public Use
  Company Number: US-ROCHE-2562362

PATIENT
  Age: 37 Year
  Sex: Female

DRUGS (13)
  1. BESIFLOXACIN [Concomitant]
     Active Substance: BESIFLOXACIN
     Route: 047
  2. RANIBIZUMAB. [Concomitant]
     Active Substance: RANIBIZUMAB
     Indication: DIABETIC RETINOPATHY
     Route: 050
  3. KETOROLAC [Concomitant]
     Active Substance: KETOROLAC TROMETHAMINE
     Dosage: ONE DROP IN EACH EYE TWICE DAILY
     Route: 047
  4. BEVACIZUMAB. [Suspect]
     Active Substance: BEVACIZUMAB
     Indication: DIABETIC RETINOPATHY
     Route: 050
  5. DORZOLAMIDE [Concomitant]
     Active Substance: DORZOLAMIDE
     Route: 047
  6. LABETALOL [Concomitant]
     Active Substance: LABETALOL\LABETALOL HYDROCHLORIDE
  7. METFORMIN [Concomitant]
     Active Substance: METFORMIN HYDROCHLORIDE
  8. HYDROCHLOROTHIAZIDE. [Concomitant]
     Active Substance: HYDROCHLOROTHIAZIDE
  9. BENAZEPRIL [Concomitant]
     Active Substance: BENAZEPRIL HYDROCHLORIDE
  10. INSULIN LISPRO [Concomitant]
     Active Substance: INSULIN LISPRO
     Dosage: 18 UNITS
     Route: 058
  11. INSULIN DETEMIR [Concomitant]
     Active Substance: INSULIN DETEMIR
     Dosage: 54 UNITS
     Route: 058
  12. EMPAGLIFLOZIN [Concomitant]
     Active Substance: EMPAGLIFLOZIN
  13. SIMVASTATIN. [Concomitant]
     Active Substance: SIMVASTATIN
     Dosage: AT BEDTIME

REACTIONS (3)
  - Proteinuria [Recovered/Resolved]
  - Blood creatinine increased [Recovered/Resolved]
  - Blood pressure increased [Recovered/Resolved]
